FAERS Safety Report 13299020 (Version 1)
Quarter: 2017Q1

REPORT INFORMATION
  Report Type: Spontaneous
  Country: FR (occurrence: FR)
  Receive Date: 20170306
  Receipt Date: 20170306
  Transmission Date: 20170428
  Serious: Yes (Hospitalization)
  Sender: FDA-Public Use
  Company Number: FR-SA-2017SA035991

PATIENT
  Age: 88 Year
  Sex: Female

DRUGS (13)
  1. STILNOX [Suspect]
     Active Substance: ZOLPIDEM TARTRATE
     Route: 048
     Dates: start: 20170118, end: 20170206
  2. KARDEGIC [Concomitant]
     Active Substance: ASPIRIN LYSINE
     Dosage: 75 MG, POWDER FOR ORAL SOLUTION IN DOSE -SACHET
     Route: 065
  3. DOLIPRANE [Concomitant]
     Active Substance: ACETAMINOPHEN
     Dosage: DOLIPRANE 1000 MG
     Route: 065
  4. CEFTRIAXONE PANPHARMA [Concomitant]
     Active Substance: CEFTRIAXONE
     Indication: PYELONEPHRITIS ACUTE
     Route: 048
     Dates: start: 20170113, end: 20170118
  5. RAMIPRIL. [Concomitant]
     Active Substance: RAMIPRIL
     Route: 065
  6. LOXEN LP [Concomitant]
     Active Substance: NICARDIPINE
     Dosage: LOXEN L P 50 MG, PROLONGED RELEASED CAPSULE
     Route: 065
  7. BISOCE [Concomitant]
     Active Substance: BISOPROLOL
     Dosage: BISOCE 2.5 MG,FILM COATED DIVISIBLE TABLET
     Route: 065
  8. FUROSEMIDE. [Concomitant]
     Active Substance: FUROSEMIDE
     Route: 065
  9. DIFFU K [Concomitant]
     Active Substance: POTASSIUM CHLORIDE
     Route: 065
  10. CETIRIZINE [Concomitant]
     Active Substance: CETIRIZINE HYDROCHLORIDE
     Route: 065
  11. CEFEPIME [Suspect]
     Active Substance: CEFEPIME HYDROCHLORIDE
     Indication: PYELONEPHRITIS ACUTE
     Route: 048
     Dates: start: 20170118, end: 20170131
  12. PLAVIX [Concomitant]
     Active Substance: CLOPIDOGREL BISULFATE
     Dosage: PLAVIX 75 MG,
     Route: 065
  13. LEVETIRACETAM. [Concomitant]
     Active Substance: LEVETIRACETAM
     Route: 065

REACTIONS (1)
  - Rash maculo-papular [Recovered/Resolved]

NARRATIVE: CASE EVENT DATE: 20170124
